FAERS Safety Report 14444679 (Version 2)
Quarter: 2018Q2

REPORT INFORMATION
  Report Type: Spontaneous
  Country: RU (occurrence: RU)
  Receive Date: 20180126
  Receipt Date: 20180406
  Transmission Date: 20180711
  Serious: Yes (Hospitalization)
  Sender: FDA-Public Use
  Company Number: RU-ASTRAZENECA-2018SE09294

PATIENT
  Age: 58 Year
  Sex: Male
  Weight: 108 kg

DRUGS (7)
  1. THROMBO ASS [Concomitant]
     Active Substance: ASPIRIN
  2. PREDUCTAL A [Concomitant]
  3. BRILINTA [Suspect]
     Active Substance: TICAGRELOR
     Indication: MYOCARDIAL INFARCTION
     Route: 048
     Dates: start: 20170620
  4. ATORVASTATIN [Concomitant]
     Active Substance: ATORVASTATIN
  5. CONCOR [Concomitant]
     Active Substance: BISOPROLOL FUMARATE
  6. EPLERENONE. [Concomitant]
     Active Substance: EPLERENONE
  7. PRESTARIUM A [Concomitant]
     Active Substance: PERINDOPRIL ARGININE

REACTIONS (5)
  - Dyspnoea [Not Recovered/Not Resolved]
  - Toothache [Recovered/Resolved]
  - Myalgia [Not Recovered/Not Resolved]
  - Vascular stent occlusion [Unknown]
  - Back pain [Not Recovered/Not Resolved]

NARRATIVE: CASE EVENT DATE: 20170620
